FAERS Safety Report 7315260-7 (Version None)
Quarter: 2011Q1

REPORT INFORMATION
  Report Type: 
  Country: None (occurrence: None)
  Receive Date: 20110215
  Receipt Date: 20110202
  Transmission Date: 20110831
  Serious: Yes (Death)
  Sender: FDA-Public Use
  Company Number: 2011MA001127

PATIENT
  Age: 35 Year
  Sex: Male

DRUGS (6)
  1. ETOPAN XL [Concomitant]
  2. CLOZAPINE [Suspect]
     Indication: PSYCHOTIC DISORDER
     Dosage: PO
     Route: 048
     Dates: start: 20060101, end: 20101225
  3. DIAZEPAM [Concomitant]
  4. VALPROATE SODIUM [Suspect]
     Indication: PROPHYLAXIS
     Dosage: 600 MG; ; PO
     Route: 048
     Dates: start: 20091101, end: 20101225
  5. MULTI-VITAMINS [Concomitant]
  6. VENLAFAXINE HYDROCHLORIDE [Suspect]
     Indication: DEPRESSION
     Dosage: 225 MG; ; PO
     Route: 048
     Dates: end: 20101025

REACTIONS (1)
  - PNEUMONIA [None]
